FAERS Safety Report 14408906 (Version 1)
Quarter: 2018Q1

REPORT INFORMATION
  Report Type: Spontaneous
  Country: PL (occurrence: PL)
  Receive Date: 20180119
  Receipt Date: 20180119
  Transmission Date: 20180509
  Serious: Yes (Other)
  Sender: FDA-Public Use
  Company Number: PL-AXELLIA-001304

PATIENT
  Age: 49 Year
  Sex: Male

DRUGS (2)
  1. VANCOMYCIN [Suspect]
     Active Substance: VANCOMYCIN
     Indication: INFECTION
     Route: 042
  2. CILASTATIN SODIUM/IMIPENEM [Suspect]
     Active Substance: CILASTATIN SODIUM\IMIPENEM
     Indication: INFECTION
     Dosage: 4 * 0.5 G
     Route: 042

REACTIONS (10)
  - Endocarditis [Recovered/Resolved]
  - Ventricular hypokinesia [None]
  - Right ventricular enlargement [None]
  - Drug ineffective [Unknown]
  - Continuous haemodiafiltration [None]
  - Pulmonary valve incompetence [None]
  - Pulmonary valve disease [None]
  - Pulmonary artery dilatation [None]
  - Right ventricular failure [None]
  - Cardiac valve vegetation [None]
